FAERS Safety Report 4482046-0 (Version None)
Quarter: 2004Q3

REPORT INFORMATION
  Report Type: 
  Country: None (occurrence: None)
  Receive Date: 20040921
  Receipt Date: 20031013
  Transmission Date: 20050211
  Serious: Yes (Hospitalization, Other)
  Sender: FDA-Public Use
  Company Number: 163-20785-03070340

PATIENT
  Age: 54 Year
  Sex: Male

DRUGS (10)
  1. THALOMID [Suspect]
     Indication: MULTIPLE MYELOMA
     Dosage: 200 MG, DAILY, ORAL
     Route: 048
     Dates: start: 20030520, end: 20030525
  2. THALOMID [Suspect]
     Indication: MULTIPLE MYELOMA
     Dosage: 200 MG, DAILY, ORAL
     Route: 048
     Dates: start: 20030804, end: 20030906
  3. DEXAMETHASONE [Suspect]
     Dosage: 40 MG, ORAL
     Route: 048
     Dates: start: 20030520, end: 20030523
  4. DEXAMETHASONE [Suspect]
     Dosage: 40 MG, ORAL
     Route: 048
     Dates: start: 20030804
  5. CISPLATIN [Suspect]
     Indication: MULTIPLE MYELOMA
     Dosage: 20 MG, INTRAVENOUS
     Dates: start: 20030520, end: 20030523
  6. ADRIAMYCIN PFS [Suspect]
     Indication: MULTIPLE MYELOMA
     Dosage: 80 MG, INTRAVENOUS
     Route: 042
     Dates: start: 20030520, end: 20030523
  7. CYCLOPHOSPHAMIDE [Suspect]
     Indication: MULTIPLE MYELOMA
     Dosage: 800 MG, INTRAVENOUS
     Route: 042
     Dates: start: 20030520, end: 20030523
  8. ETOPOSIDE [Suspect]
     Indication: MULTIPLE MYELOMA
     Dosage: 80 MG, INTRAVENOUS
     Route: 042
     Dates: start: 20030520, end: 20030523
  9. MELPHALAN (MELPHALAN) [Suspect]
     Indication: MULTIPLE MYELOMA
     Dosage: 50 MG, DAILY, INTRAVENOUS
     Route: 042
     Dates: start: 20030929
  10. LOVENOX [Concomitant]

REACTIONS (6)
  - DEEP VEIN THROMBOSIS [None]
  - DIARRHOEA [None]
  - FEBRILE NEUTROPENIA [None]
  - INFUSION SITE REACTION [None]
  - PNEUMONIA [None]
  - STAPHYLOCOCCAL INFECTION [None]
